FAERS Safety Report 14281783 (Version 15)
Quarter: 2018Q1

REPORT INFORMATION
  Report Type: Spontaneous
  Country: PT (occurrence: PT)
  Receive Date: 20171213
  Receipt Date: 20180321
  Transmission Date: 20180508
  Serious: Yes (Hospitalization, Other)
  Sender: FDA-Public Use
  Company Number: PT-PFIZER INC-2017508047

PATIENT
  Age: 78 Year
  Sex: Male

DRUGS (3)
  1. AMIODARONE HCL [Suspect]
     Active Substance: AMIODARONE HYDROCHLORIDE
     Indication: ATRIAL FIBRILLATION
     Dosage: 100 MG, 3 TIMES/WEEK
     Route: 048
  2. APIXABAN [Suspect]
     Active Substance: APIXABAN
     Indication: CEREBROVASCULAR ACCIDENT PROPHYLAXIS
     Dosage: 5 MG, BID
  3. APIXABAN [Suspect]
     Active Substance: APIXABAN
     Dosage: 2.5 MG, BID

REACTIONS (5)
  - Catheter site haemorrhage [Unknown]
  - Pneumonia pneumococcal [Unknown]
  - Respiratory failure [Recovered/Resolved]
  - Haemoglobin decreased [Recovered/Resolved]
  - Pulmonary alveolar haemorrhage [Recovered/Resolved]
